FAERS Safety Report 15269158 (Version 1)
Quarter: 2018Q3

REPORT INFORMATION
  Report Type: Spontaneous
  Country: DE (occurrence: DE)
  Receive Date: 20180813
  Receipt Date: 20180813
  Transmission Date: 20181010
  Serious: Yes (Other)
  Sender: FDA-Public Use
  Company Number: DE-ROCHE-2144895

PATIENT
  Sex: Female

DRUGS (6)
  1. FAMPYRA [Concomitant]
     Active Substance: DALFAMPRIDINE
     Route: 048
  2. MICTONORM [Concomitant]
     Active Substance: PROPIVERINE HYDROCHLORIDE
     Route: 048
  3. CANDESARTAN. [Concomitant]
     Active Substance: CANDESARTAN
     Route: 048
  4. SATIVEX [Concomitant]
     Active Substance: NABIXIMOLS
     Dosage: UP TO 12 HUBS
     Route: 065
  5. MIRTAZAPIN [Concomitant]
     Active Substance: MIRTAZAPINE
     Route: 048
  6. OCREVUS [Suspect]
     Active Substance: OCRELIZUMAB
     Indication: PRODUCT USED FOR UNKNOWN INDICATION
     Route: 042
     Dates: start: 20180515

REACTIONS (1)
  - Lymphopenia [Unknown]
